FAERS Safety Report 17521905 (Version 4)
Quarter: 2020Q2

REPORT INFORMATION
  Report Type: Report from Study
  Country: US (occurrence: US)
  Receive Date: 20200310
  Receipt Date: 20200422
  Transmission Date: 20200713
  Serious: Yes (Hospitalization)
  Sender: FDA-Public Use
  Company Number: NVSC2020US066599

PATIENT
  Age: 73 Year
  Sex: Male
  Weight: 96.4 kg

DRUGS (24)
  1. BLINDED LCZ696 [Suspect]
     Active Substance: SACUBITRIL\VALSARTAN
     Dosage: CODE NOT BROKEN
     Route: 048
     Dates: start: 20200203, end: 20200217
  2. DIOVAN [Suspect]
     Active Substance: VALSARTAN
     Dosage: CODE NOT BROKEN
     Route: 048
     Dates: start: 20200217
  3. ELIQUIS [Concomitant]
     Active Substance: APIXABAN
     Indication: ATRIAL FIBRILLATION
     Dosage: 5 MG
     Route: 065
     Dates: start: 20200304
  4. SPIRIVA [Concomitant]
     Active Substance: TIOTROPIUM BROMIDE MONOHYDRATE
     Indication: RESPIRATORY FAILURE
     Dosage: 18 MCG, UNK
     Route: 065
     Dates: start: 20181214
  5. FERGON [Concomitant]
     Active Substance: FERROUS GLUCONATE
     Indication: IRON DEFICIENCY ANAEMIA
     Dosage: 324 MG
     Route: 065
     Dates: start: 20200121
  6. BLINDED LCZ696 [Suspect]
     Active Substance: SACUBITRIL\VALSARTAN
     Indication: CARDIAC FAILURE ACUTE
     Dosage: CODE NOT BROKEN
     Route: 048
     Dates: start: 20200120
  7. BLINDED NO TREATMENT RECEIVED [Suspect]
     Active Substance: INVESTIGATIONAL PRODUCT
     Indication: CARDIAC FAILURE ACUTE
     Dosage: CODE NOT BROKEN
     Route: 048
     Dates: start: 20200120
  8. BUMEX [Concomitant]
     Active Substance: BUMETANIDE
     Indication: CARDIAC FAILURE
     Dosage: 1 MG
     Route: 065
     Dates: start: 20181228
  9. ADVAIR HFA [Concomitant]
     Active Substance: FLUTICASONE PROPIONATE\SALMETEROL XINAFOATE
     Indication: PRODUCT USED FOR UNKNOWN INDICATION
     Dosage: 250-50 MCG/INH
     Route: 065
     Dates: start: 20181218
  10. LOPID [Concomitant]
     Active Substance: GEMFIBROZIL
     Indication: HYPERLIPIDAEMIA
     Dosage: 600 MG
     Route: 065
     Dates: start: 20181214
  11. DIOVAN [Suspect]
     Active Substance: VALSARTAN
     Dosage: CODE NOT BROKEN
     Route: 048
     Dates: start: 20200203, end: 20200217
  12. GLUCOPHAGE [Concomitant]
     Active Substance: METFORMIN HYDROCHLORIDE
     Indication: TYPE 2 DIABETES MELLITUS
     Dosage: 1000 MG
     Route: 065
     Dates: start: 20181204
  13. SPIRIVA [Concomitant]
     Active Substance: TIOTROPIUM BROMIDE MONOHYDRATE
     Indication: HYPOXIA
  14. LIPITOR [Concomitant]
     Active Substance: ATORVASTATIN CALCIUM
     Indication: DYSLIPIDAEMIA
     Dosage: 80 MG
     Route: 065
     Dates: start: 20200304
  15. BLINDED LCZ696 [Suspect]
     Active Substance: SACUBITRIL\VALSARTAN
     Dosage: CODE NOT BROKEN
     Route: 048
     Dates: start: 20200217
  16. BLINDED NO TREATMENT RECEIVED [Suspect]
     Active Substance: INVESTIGATIONAL PRODUCT
     Dosage: CODE NOT BROKEN
     Route: 048
     Dates: start: 20200217
  17. SENOKOT [Concomitant]
     Active Substance: SENNOSIDES
     Indication: IRON DEFICIENCY ANAEMIA
     Dosage: 8.6 MG
     Route: 065
     Dates: start: 20200122, end: 20200305
  18. FLOMAX [Concomitant]
     Active Substance: TAMSULOSIN HYDROCHLORIDE
     Indication: BENIGN PROSTATIC HYPERPLASIA
     Dosage: 0.4 MG
     Route: 065
     Dates: start: 20200113
  19. DIOVAN [Suspect]
     Active Substance: VALSARTAN
     Dosage: CODE NOT BROKEN
     Route: 048
     Dates: start: 20200203, end: 20200217
  20. DIOVAN [Suspect]
     Active Substance: VALSARTAN
     Indication: CARDIAC FAILURE ACUTE
     Dosage: CODE NOT BROKEN
     Route: 048
     Dates: start: 20200120
  21. DIOVAN [Suspect]
     Active Substance: VALSARTAN
     Indication: CARDIAC FAILURE ACUTE
     Dosage: CODE NOT BROKEN
     Route: 048
     Dates: start: 20200120
  22. DIOVAN [Suspect]
     Active Substance: VALSARTAN
     Dosage: CODE NOT BROKEN
     Route: 048
     Dates: start: 20200217
  23. SPIRIVA [Concomitant]
     Active Substance: TIOTROPIUM BROMIDE MONOHYDRATE
     Indication: HYPERCAPNIA
  24. BLINDED NO TREATMENT RECEIVED [Suspect]
     Active Substance: INVESTIGATIONAL PRODUCT
     Dosage: CODE NOT BROKEN
     Route: 048
     Dates: start: 20200203, end: 20200217

REACTIONS (1)
  - Acute kidney injury [Recovered/Resolved]

NARRATIVE: CASE EVENT DATE: 20200302
